FAERS Safety Report 8593197-3 (Version None)
Quarter: 2012Q3

REPORT INFORMATION
  Report Type: 
  Country: None (occurrence: None)
  Receive Date: 20120814
  Receipt Date: 20120803
  Transmission Date: 20120928
  Serious: Yes (Hospitalization, Other)
  Sender: FDA-Public Use
  Company Number: FR-MERCK-1208FRA001958

PATIENT

DRUGS (6)
  1. VICTRELIS [Suspect]
     Indication: HEPATITIS C
  2. ESCITALOPRAM [Concomitant]
     Indication: DEPRESSION
  3. LASIX [Concomitant]
     Indication: PRODUCT USED FOR UNKNOWN INDICATION
  4. REBETOL [Suspect]
     Indication: HEPATITIS C
  5. FOLIC ACID [Suspect]
     Indication: PRODUCT USED FOR UNKNOWN INDICATION
  6. VIRAFERONPEG [Suspect]
     Indication: HEPATITIS C

REACTIONS (1)
  - HEPATIC ENCEPHALOPATHY [None]
